FAERS Safety Report 18368795 (Version 1)
Quarter: 2020Q4

REPORT INFORMATION
  Report Type: Spontaneous
  Country: US (occurrence: US)
  Receive Date: 20201010
  Receipt Date: 20201010
  Transmission Date: 20210114
  Serious: No
  Sender: FDA-Public Use
  Company Number: US-TECHDOW-2020TECHDOW000528

PATIENT

DRUGS (1)
  1. HEPARIN SODIUM INJECTION, USP (PARABENS WITH NACL) [Suspect]
     Active Substance: HEPARIN SODIUM

REACTIONS (1)
  - Drug ineffective [None]
